FAERS Safety Report 6174701-1 (Version None)
Quarter: 2009Q2

REPORT INFORMATION
  Report Type: 
  Country: None (occurrence: None)
  Receive Date: 20090430
  Receipt Date: 20080819
  Transmission Date: 20091009
  Serious: No
  Sender: FDA-Public Use
  Company Number: US-ASTRAZENECA-2008UW17086

PATIENT
  Age: 59 Year
  Sex: Male
  Weight: 98.4 kg

DRUGS (3)
  1. NEXIUM [Suspect]
     Indication: ABDOMINAL PAIN UPPER
     Route: 048
  2. PROTONIX [Concomitant]
  3. MULTIPLE SUPPLEMENTS [Concomitant]

REACTIONS (3)
  - FEELING ABNORMAL [None]
  - HYPOAESTHESIA FACIAL [None]
  - HYPOAESTHESIA ORAL [None]
